FAERS Safety Report 15237576 (Version 2)
Quarter: 2019Q2

REPORT INFORMATION
  Report Type: Spontaneous
  Country: US (occurrence: US)
  Receive Date: 20180803
  Receipt Date: 20190418
  Transmission Date: 20190711
  Serious: No
  Sender: FDA-Public Use
  Company Number: US-BAYER-2018-141497

PATIENT
  Age: 61 Year
  Sex: Female

DRUGS (3)
  1. BETASERON [Suspect]
     Active Substance: INTERFERON BETA-1B
     Indication: MULTIPLE SCLEROSIS
     Dosage: 0.25 MG, QOD
     Dates: start: 200712
  2. BETASERON [Suspect]
     Active Substance: INTERFERON BETA-1B
     Indication: MULTIPLE SCLEROSIS
     Dosage: 8 MIU
     Dates: start: 20050101
  3. BETACONNECT [Suspect]
     Active Substance: DEVICE
     Dosage: UNK

REACTIONS (5)
  - Device malfunction [Recovered/Resolved]
  - Decreased interest [None]
  - Depression [None]
  - Anaemia [None]
  - Injection site rash [None]

NARRATIVE: CASE EVENT DATE: 20160608
